FAERS Safety Report 5618850-2 (Version None)
Quarter: 2008Q1

REPORT INFORMATION
  Report Type: 
  Country: None (occurrence: None)
  Receive Date: 20080207
  Receipt Date: 20071022
  Transmission Date: 20080703
  Serious: Yes (Other)
  Sender: FDA-Public Use
  Company Number: CA-PFIZER INC-2007007516

PATIENT
  Age: 57 Year
  Sex: Female

DRUGS (6)
  1. SUTENT [Suspect]
     Indication: RENAL CELL CARCINOMA
  2. WARFARIN SODIUM [Suspect]
  3. ENOXAPARIN SODIUM [Concomitant]
     Route: 065
  4. VITAMINS [Concomitant]
     Route: 065
  5. ANTINEOPLASTIC AGENTS [Concomitant]
     Route: 065
  6. ALL OTHER THERAPEUTIC PRODUCTS [Concomitant]

REACTIONS (10)
  - ABDOMINAL DISTENSION [None]
  - BLOOD URINE PRESENT [None]
  - FEELING COLD [None]
  - HAEMATOCHEZIA [None]
  - HEADACHE [None]
  - HOT FLUSH [None]
  - INFLUENZA [None]
  - LETHARGY [None]
  - SALIVA ALTERED [None]
  - STOMATITIS [None]
